FAERS Safety Report 9727528 (Version 1)
Quarter: 2013Q4

REPORT INFORMATION
  Report Type: Spontaneous
  Country: US (occurrence: US)
  Receive Date: 20131203
  Receipt Date: 20131203
  Transmission Date: 20140711
  Serious: No
  Sender: FDA-Public Use
  Company Number: US-GILEAD-2008-0019119

PATIENT
  Sex: Male

DRUGS (5)
  1. VIREAD [Suspect]
     Indication: HIV INFECTION
  2. EMTRIVA [Suspect]
  3. PREZISTA [Concomitant]
  4. RITONAVIR [Concomitant]
  5. MARAVIROC [Concomitant]

REACTIONS (1)
  - Crystalluria [Unknown]
